FAERS Safety Report 10763329 (Version 5)
Quarter: 2015Q2

REPORT INFORMATION
  Report Type: Spontaneous
  Country: JP (occurrence: JP)
  Receive Date: 20150204
  Receipt Date: 20150501
  Transmission Date: 20150821
  Serious: Yes (Other)
  Sender: FDA-Public Use
  Company Number: JP-GLAXOSMITHKLINE-JP2015JPN009978

PATIENT
  Age: 45 Year
  Sex: Female

DRUGS (14)
  1. LAMICTAL [Suspect]
     Active Substance: LAMOTRIGINE
     Dosage: 50 MG, QD
     Route: 048
     Dates: start: 20140329, end: 20140411
  2. LIMAS [Concomitant]
     Active Substance: LITHIUM CARBONATE
     Dosage: 800 MG, 1D
  3. ETIZOLAM [Concomitant]
     Active Substance: ETIZOLAM
     Dosage: 2 MG, 1D
  4. VALERIN [Concomitant]
     Active Substance: VALPROATE SODIUM
     Dosage: 200 MG, BID
     Dates: start: 20141122, end: 20150105
  5. LAMICTAL [Suspect]
     Active Substance: LAMOTRIGINE
     Dosage: 100 MG, QD
     Route: 048
     Dates: start: 20140723, end: 20140801
  6. LAMICTAL [Suspect]
     Active Substance: LAMOTRIGINE
     Dosage: 200 MG, BID
     Route: 048
     Dates: start: 20140927
  7. VALERIN [Concomitant]
     Active Substance: VALPROATE SODIUM
     Dosage: 200 MG, BID
     Dates: start: 20140823, end: 20140912
  8. VALERIN [Concomitant]
     Active Substance: VALPROATE SODIUM
     Dosage: 400 MG, BID
     Dates: start: 20150106, end: 20150123
  9. VALERIN [Concomitant]
     Active Substance: VALPROATE SODIUM
     Dosage: 200 MG, BID
     Dates: start: 20150124
  10. LAMICTAL [Suspect]
     Active Substance: LAMOTRIGINE
     Dosage: 100 MG, QD
     Route: 048
     Dates: start: 20140412, end: 20140425
  11. ROHYPNOL [Concomitant]
     Active Substance: FLUNITRAZEPAM
     Dosage: 2 MG, 1D
  12. LAMICTAL [Suspect]
     Active Substance: LAMOTRIGINE
     Dosage: 100 MG, BID
     Route: 048
     Dates: start: 20140426, end: 20140704
  13. LAMICTAL [Suspect]
     Active Substance: LAMOTRIGINE
     Dosage: 25 MG, QD
     Route: 048
     Dates: start: 20140315, end: 20140328
  14. LAMICTAL [Suspect]
     Active Substance: LAMOTRIGINE
     Dosage: 100 MG, BID
     Route: 048
     Dates: start: 20140802, end: 20140926

REACTIONS (4)
  - Abdominal discomfort [Unknown]
  - Loss of control of legs [Recovering/Resolving]
  - Gait disturbance [Recovering/Resolving]
  - Vision blurred [Recovering/Resolving]

NARRATIVE: CASE EVENT DATE: 201410
